FAERS Safety Report 6395939-4 (Version None)
Quarter: 2009Q4

REPORT INFORMATION
  Report Type: 
  Country: None (occurrence: None)
  Receive Date: 20091007
  Receipt Date: 20090929
  Transmission Date: 20100525
  Serious: Yes (Hospitalization, Other)
  Sender: FDA-Public Use
  Company Number: TPA2009A02807

PATIENT
  Age: 71 Year
  Sex: Female
  Weight: 99.7913 kg

DRUGS (12)
  1. ULORIC [Suspect]
     Indication: GOUT
     Dosage: 80 MG, 1 IN 1 D, PER ORAL 80 MG, PT DOES NOT TAKE ULORIC ON MONDAY, PER ORAL
     Route: 048
     Dates: start: 20090818, end: 20090916
  2. ULORIC [Suspect]
     Indication: GOUT
     Dosage: 80 MG, 1 IN 1 D, PER ORAL 80 MG, PT DOES NOT TAKE ULORIC ON MONDAY, PER ORAL
     Route: 048
     Dates: start: 20090925
  3. PREDNISONE TAB [Suspect]
     Indication: GOUT
     Dosage: 10MG - 40MG DAILY, AS NEEDED, PER ORAL
     Route: 048
     Dates: start: 20090818, end: 20090916
  4. HUMALOG [Concomitant]
  5. BUMEX [Concomitant]
  6. COUMADIN [Concomitant]
  7. LISINOPRIL [Concomitant]
  8. COREG [Concomitant]
  9. LANTUS [Concomitant]
  10. ALDACTONE [Concomitant]
  11. CHOLESTYRAMINE LITE (ALL OTHER THERAPEUTIC PRODUCTS) [Concomitant]
  12. HEMOGLOBIN INJECTION (ALL OTHER THERAPEUTIC PRODUCTS) [Concomitant]

REACTIONS (5)
  - ASTHENIA [None]
  - HAEMOGLOBIN DECREASED [None]
  - PROTHROMBIN TIME PROLONGED [None]
  - RECTAL HAEMORRHAGE [None]
  - TROPONIN INCREASED [None]
